FAERS Safety Report 17132145 (Version 1)
Quarter: 2019Q4

REPORT INFORMATION
  Report Type: Spontaneous
  Country: JP (occurrence: JP)
  Receive Date: 20191210
  Receipt Date: 20191210
  Transmission Date: 20200122
  Serious: Yes (Death, Other)
  Sender: FDA-Public Use
  Company Number: NVSJ2019JP002587

PATIENT
  Age: 49 Year
  Sex: Male
  Weight: 67 kg

DRUGS (31)
  1. HARTMANN [Concomitant]
     Active Substance: CALCIUM CHLORIDE\POTASSIUM CHLORIDE\SODIUM CHLORIDE\SODIUM LACTATE
     Indication: NASAL SINUS CANCER
     Dosage: 1000 ML
     Route: 041
     Dates: start: 20190601, end: 20190601
  2. MAGNESIUM SULFATE DIHYDRATE [Concomitant]
     Indication: PROPHYLAXIS
     Dosage: 8 ML
     Route: 065
     Dates: start: 20160601, end: 20160601
  3. FUROSEMIDE. [Concomitant]
     Active Substance: FUROSEMIDE
     Indication: PROPHYLAXIS
     Dosage: 20 MG
     Route: 065
     Dates: start: 20160601, end: 20160601
  4. SOLDEM 3A [Concomitant]
     Active Substance: CARBOHYDRATES\POTASSIUM CHLORIDE\SODIUM CHLORIDE\SODIUM LACTATE
     Dosage: 500 ML
     Route: 041
     Dates: start: 20160605, end: 20160607
  5. CEFTAZIDIME. [Concomitant]
     Active Substance: CEFTAZIDIME
     Indication: NEUTROPENIA
     Dosage: 4 G
     Route: 065
     Dates: start: 20160609, end: 20160610
  6. ISOTONIC SODIUM CHLORIDE SOLUTION [Concomitant]
     Active Substance: SODIUM CHLORIDE
     Dosage: 1000 UNK
     Route: 041
     Dates: start: 20160601, end: 20160601
  7. ISOTONIC SODIUM CHLORIDE SOLUTION [Concomitant]
     Active Substance: SODIUM CHLORIDE
     Dosage: 40 UNK
     Route: 042
     Dates: start: 20160611, end: 20160613
  8. GLUC5% [Concomitant]
     Indication: NASAL SINUS CANCER
     Dosage: 250 ML
     Route: 041
     Dates: start: 20160601, end: 20160601
  9. SOLDEM 3A [Concomitant]
     Active Substance: CARBOHYDRATES\POTASSIUM CHLORIDE\SODIUM CHLORIDE\SODIUM LACTATE
     Dosage: 1000 ML
     Route: 041
     Dates: start: 20160608, end: 20160610
  10. FAMOTIDINE. [Concomitant]
     Active Substance: FAMOTIDINE
     Indication: NEUTROPENIA
     Dosage: 40 MG
     Route: 042
     Dates: start: 20160611, end: 20160613
  11. ACELIO [Concomitant]
     Active Substance: ACETAMINOPHEN
     Indication: NEUTROPENIA
     Dosage: 2000 MG
     Route: 065
     Dates: start: 20160609, end: 20160609
  12. MEYLON [Concomitant]
     Active Substance: SODIUM BICARBONATE
     Indication: NEUTROPENIA
     Dosage: 20 ML
     Route: 041
     Dates: start: 20160622, end: 20160622
  13. EPINEPHRINE. [Concomitant]
     Active Substance: EPINEPHRINE
     Indication: NEUTROPENIA
     Dosage: 9 ML
     Route: 041
     Dates: start: 20160622, end: 20160622
  14. SOLDEM 3A [Concomitant]
     Active Substance: CARBOHYDRATES\POTASSIUM CHLORIDE\SODIUM CHLORIDE\SODIUM LACTATE
     Indication: PROPHYLAXIS
     Dosage: 500 ML
     Route: 041
     Dates: start: 20160601, end: 20160601
  15. ISOTONIC SODIUM CHLORIDE SOLUTION [Concomitant]
     Active Substance: SODIUM CHLORIDE
     Dosage: 400 ML
     Route: 065
     Dates: start: 20160609, end: 20160609
  16. DEXART [Concomitant]
     Active Substance: DEXAMETHASONE SODIUM PHOSPHATE
     Indication: PROPHYLAXIS
     Dosage: 13.2 MG
     Route: 065
     Dates: start: 20160601, end: 20160601
  17. ALOXI [Concomitant]
     Active Substance: PALONOSETRON HYDROCHLORIDE
     Indication: PROPHYLAXIS
     Dosage: 0.75 MG
     Route: 065
     Dates: start: 20160601, end: 20160601
  18. MANNITOL. [Concomitant]
     Active Substance: MANNITOL
     Indication: PROPHYLAXIS
     Dosage: 300 ML
     Route: 065
     Dates: start: 20160601, end: 20160601
  19. HYOSCINE BUTYLBROMIDE [Concomitant]
     Active Substance: BUTYLSCOPOLAMINE BROMIDE
     Indication: NEUTROPENIA
     Dosage: 20 MG
     Route: 042
     Dates: start: 20160607, end: 20160608
  20. CEFEPIME HYDROCHLORIDE. [Concomitant]
     Active Substance: CEFEPIME HYDROCHLORIDE
     Indication: NEUTROPENIA
     Dosage: 4 G
     Route: 065
     Dates: start: 20160610, end: 20160612
  21. HARTMANN [Concomitant]
     Active Substance: CALCIUM CHLORIDE\POTASSIUM CHLORIDE\SODIUM CHLORIDE\SODIUM LACTATE
     Dosage: 500 ML
     Route: 042
     Dates: start: 20190622, end: 20190622
  22. SOLDEM 3A [Concomitant]
     Active Substance: CARBOHYDRATES\POTASSIUM CHLORIDE\SODIUM CHLORIDE\SODIUM LACTATE
     Dosage: 1000 ML
     Route: 041
     Dates: start: 20160611, end: 20160613
  23. CISPLATIN. [Suspect]
     Active Substance: CISPLATIN
     Indication: NASAL SINUS CANCER
     Dosage: 158.24 MG
     Route: 041
     Dates: start: 20160601, end: 20160601
  24. HARTMANN [Concomitant]
     Active Substance: CALCIUM CHLORIDE\POTASSIUM CHLORIDE\SODIUM CHLORIDE\SODIUM LACTATE
     Dosage: 500 ML
     Route: 042
     Dates: start: 20190606, end: 20190606
  25. ISOTONIC SODIUM CHLORIDE SOLUTION [Concomitant]
     Active Substance: SODIUM CHLORIDE
     Dosage: 600 ML
     Route: 065
     Dates: start: 20160610, end: 20160610
  26. ISOTONIC SODIUM CHLORIDE SOLUTION [Concomitant]
     Active Substance: SODIUM CHLORIDE
     Dosage: 200 ML
     Route: 065
     Dates: start: 20160611, end: 20160611
  27. DOCETAXEL INTRAVENOUS INFUSION 20MG/2ML [Suspect]
     Active Substance: DOCETAXEL
     Indication: NASAL SINUS CANCER
     Dosage: 118.68 MG
     Route: 041
     Dates: start: 20160601, end: 20160601
  28. PRIMPERAN [Concomitant]
     Active Substance: METOCLOPRAMIDE HYDROCHLORIDE
     Indication: PROPHYLAXIS
     Dosage: 10 MG
     Route: 065
     Dates: start: 20160602, end: 20160602
  29. HYOSCINE BUTYLBROMIDE [Concomitant]
     Active Substance: BUTYLSCOPOLAMINE BROMIDE
     Dosage: 40 MG
     Route: 042
     Dates: start: 20160610, end: 20160610
  30. ISOTONIC SODIUM CHLORIDE SOLUTION [Concomitant]
     Active Substance: SODIUM CHLORIDE
     Indication: NASAL SINUS CANCER
     Dosage: 200 ML
     Route: 065
     Dates: start: 20160601, end: 20160601
  31. ISOTONIC SODIUM CHLORIDE SOLUTION [Concomitant]
     Active Substance: SODIUM CHLORIDE
     Dosage: 40 UNK
     Route: 042
     Dates: start: 20160608, end: 20160610

REACTIONS (6)
  - Abdominal pain [Recovering/Resolving]
  - Malaise [Not Recovered/Not Resolved]
  - Neutropenia [Unknown]
  - Diarrhoea [Recovering/Resolving]
  - Nasal sinus cancer [Fatal]
  - Malignant neoplasm progression [Fatal]

NARRATIVE: CASE EVENT DATE: 20160608
